FAERS Safety Report 4450454-X (Version None)
Quarter: 2004Q3

REPORT INFORMATION
  Report Type: 
  Country: None (occurrence: None)
  Receive Date: 20040914
  Receipt Date: 20040831
  Transmission Date: 20050211
  Serious: Yes (Hospitalization)
  Sender: FDA-Public Use
  Company Number: 2004-UK-00855UK

PATIENT
  Age: 84 Year
  Sex: Male

DRUGS (5)
  1. PERSANTIN [Suspect]
     Indication: TRANSIENT ISCHAEMIC ATTACK
     Dosage: 100 MG, PO
     Route: 048
     Dates: start: 20010101, end: 20040802
  2. ASPIRIN [Suspect]
     Indication: TRANSIENT ISCHAEMIC ATTACK
     Dosage: 75 MG PO
     Route: 048
     Dates: start: 20010101, end: 20040802
  3. ATENOLOL [Concomitant]
  4. BENDROFLUAZIDE (BENDROFLUMETHIAZIDE) [Concomitant]
  5. ACETAMINOPHEN [Concomitant]

REACTIONS (5)
  - CANDIDIASIS [None]
  - DUODENAL ULCER [None]
  - FAECES DISCOLOURED [None]
  - HELICOBACTER INFECTION [None]
  - OESOPHAGITIS [None]
